FAERS Safety Report 9995520 (Version 1)
Quarter: 2014Q1

REPORT INFORMATION
  Report Type: Spontaneous
  Country: US (occurrence: None)
  Receive Date: 20140218
  Receipt Date: 20140218
  Transmission Date: 20141002
  Serious: No
  Sender: FDA-Public Use
  Company Number: 1000052424

PATIENT
  Age: 59 Year
  Sex: Female

DRUGS (5)
  1. VIIBRYD [Suspect]
     Indication: DEPRESSION
     Route: 048
     Dates: start: 20131204, end: 20131210
  2. PREDNISON [Suspect]
     Indication: FIBROMYALGIA
     Dosage: 24 MG (12 MG, 2 IN 1 D)
  3. EFFEXOR (VENLAFAXINE HYDROCHLORIDE) (VENLAFAXINE HYDROCHLORIDE) [Concomitant]
  4. OXYCONTIN (OXYCODONE HYDROCHLORIDE) (OXYCODONE HYDROCHLORIDE) [Concomitant]
  5. ALPRAZOLAM (ALPRAZOLAM) [Concomitant]

REACTIONS (3)
  - Anxiety [None]
  - Energy increased [None]
  - Logorrhoea [None]
